FAERS Safety Report 13085739 (Version 1)
Quarter: 2017Q1

REPORT INFORMATION
  Report Type: Spontaneous
  Country: IN (occurrence: IN)
  Receive Date: 20170104
  Receipt Date: 20170104
  Transmission Date: 20170428
  Serious: Yes (Other)
  Sender: FDA-Public Use
  Company Number: PHHY2016IN180690

PATIENT
  Age: 61 Year
  Sex: Male

DRUGS (1)
  1. DICLOFENAC SODIUM. [Suspect]
     Active Substance: DICLOFENAC SODIUM
     Indication: DIABETIC RETINAL OEDEMA
     Dosage: 450 ?G (SYSTEMIC PREPARATION)
     Route: 031

REACTIONS (4)
  - Macular fibrosis [Recovered/Resolved]
  - Retinal degeneration [Recovered/Resolved]
  - Product use issue [Unknown]
  - Retinal toxicity [Recovered/Resolved]
